FAERS Safety Report 6282140-8 (Version None)
Quarter: 2009Q3

REPORT INFORMATION
  Report Type: 
  Country: None (occurrence: None)
  Receive Date: 20090721
  Receipt Date: 20090721
  Transmission Date: 20100115
  Serious: Yes (Disabling, Other)
  Sender: FDA-Public Use
  Company Number: None

PATIENT
  Sex: Female
  Weight: 68.0396 kg

DRUGS (2)
  1. ANTIGENS [Suspect]
     Indication: RHINITIS ALLERGIC
     Dosage: INITIAL INJECTION ID
     Route: 023
     Dates: start: 20090618, end: 20090618
  2. ALLERGENIC EXTRACTS [Concomitant]

REACTIONS (3)
  - DISCOMFORT [None]
  - EMOTIONAL DISORDER [None]
  - LEUKOCYTOCLASTIC VASCULITIS [None]
